FAERS Safety Report 10236089 (Version 2)
Quarter: 2014Q3

REPORT INFORMATION
  Report Type: Spontaneous
  Country: GB (occurrence: GB)
  Receive Date: 20140613
  Receipt Date: 20140708
  Transmission Date: 20150326
  Serious: Yes (Other)
  Sender: FDA-Public Use
  Company Number: GB-TEVA-486903ISR

PATIENT
  Age: 73 Year
  Sex: Female

DRUGS (3)
  1. VINCRISTINE [Suspect]
     Active Substance: VINCRISTINE
  2. PROCARBAZINE [Suspect]
     Active Substance: PROCARBAZINE
  3. LOMUSTINE. [Suspect]
     Active Substance: LOMUSTINE

REACTIONS (2)
  - Bone marrow toxicity [Unknown]
  - Full blood count abnormal [Unknown]
